FAERS Safety Report 23068893 (Version 2)
Quarter: 2023Q4

REPORT INFORMATION
  Report Type: Other
  Country: US (occurrence: None)
  Receive Date: 20231016
  Receipt Date: 20231017
  Transmission Date: 20240110
  Serious: No
  Sender: FDA-Public Use
  Company Number: US-ROCHE-3439067

PATIENT
  Age: 66 Year
  Sex: Female
  Weight: 99.426 kg

DRUGS (1)
  1. OCREVUS [Suspect]
     Active Substance: OCRELIZUMAB
     Indication: Relapsing-remitting multiple sclerosis
     Dosage: 2ND SPLIT ON MAR/2023,  DATE OF TREATMENT: 07/MAR/2023
     Route: 042
     Dates: start: 202302

REACTIONS (9)
  - Back pain [Not Recovered/Not Resolved]
  - Body temperature fluctuation [Not Recovered/Not Resolved]
  - Muscle spasticity [Not Recovered/Not Resolved]
  - Neuropathy peripheral [Not Recovered/Not Resolved]
  - Dysphagia [Not Recovered/Not Resolved]
  - Tremor [Not Recovered/Not Resolved]
  - Muscular weakness [Not Recovered/Not Resolved]
  - Brain fog [Not Recovered/Not Resolved]
  - Influenza [Unknown]
